FAERS Safety Report 17288507 (Version 7)
Quarter: 2024Q2

REPORT INFORMATION
  Report Type: Spontaneous
  Country: CA (occurrence: CA)
  Receive Date: 20200120
  Receipt Date: 20240417
  Transmission Date: 20240716
  Serious: Yes (Hospitalization, Other)
  Sender: FDA-Public Use
  Company Number: CA-PFIZER INC-2020020782

PATIENT
  Age: 4 Year
  Sex: Male

DRUGS (15)
  1. SOMATROPIN [Suspect]
     Active Substance: SOMATROPIN
     Indication: Growth hormone deficiency
     Dosage: 0.3 MG, DAILY
  2. SOMATROPIN [Suspect]
     Active Substance: SOMATROPIN
     Dosage: UNK
     Route: 058
     Dates: start: 201906
  3. SOMATROPIN [Suspect]
     Active Substance: SOMATROPIN
     Dosage: 0.35 MG (350 UG), OD (DAILY)
     Route: 058
     Dates: start: 20190601, end: 202007
  4. SOMATROPIN [Suspect]
     Active Substance: SOMATROPIN
     Dosage: 0.4 MG (400 UG), ONCE A DAY
     Route: 058
     Dates: start: 202007, end: 202010
  5. SOMATROPIN [Suspect]
     Active Substance: SOMATROPIN
     Dosage: 0.18 MG/KG SEMAINE, 7 DAYS/WEEK
  6. SOMATROPIN [Suspect]
     Active Substance: SOMATROPIN
     Dosage: 450 UG, ONCE A DAY
     Route: 058
     Dates: start: 202010, end: 202101
  7. SOMATROPIN [Suspect]
     Active Substance: SOMATROPIN
     Dosage: 400 UG, ONCE A DAY
     Route: 058
     Dates: start: 202101, end: 202109
  8. SOMATROPIN [Suspect]
     Active Substance: SOMATROPIN
     Dosage: 450 UG, ONCE A DAY
     Route: 058
     Dates: start: 202109, end: 202205
  9. SOMATROPIN [Suspect]
     Active Substance: SOMATROPIN
     Dosage: 500 UG, ONCE A DAY
     Route: 058
     Dates: start: 202205
  10. DDAVP [Concomitant]
     Active Substance: DESMOPRESSIN ACETATE
     Dosage: UNK
     Route: 065
  11. KEPPRA [Concomitant]
     Active Substance: LEVETIRACETAM
     Dosage: UNK
     Route: 065
  12. MELATONIN [Concomitant]
     Active Substance: MELATONIN
     Dosage: UNK
     Route: 065
  13. PREDNISONE [Concomitant]
     Active Substance: PREDNISONE
     Dosage: UNK
     Route: 065
  14. SYNTHROID [Concomitant]
     Active Substance: LEVOTHYROXINE SODIUM
     Dosage: UNK
     Route: 065
  15. TOPAMAX [Concomitant]
     Active Substance: TOPIRAMATE
     Dosage: UNK
     Route: 065

REACTIONS (3)
  - Hypopituitarism [Unknown]
  - Hypoglycaemic seizure [Unknown]
  - Gastroenteritis viral [Unknown]

NARRATIVE: CASE EVENT DATE: 20230401
